FAERS Safety Report 7708010-3 (Version None)
Quarter: 2011Q3

REPORT INFORMATION
  Report Type: 
  Country: None (occurrence: None)
  Receive Date: 20110824
  Receipt Date: 20110817
  Transmission Date: 20111222
  Serious: Yes (Death)
  Sender: FDA-Public Use
  Company Number: US-CELGENEUS-163-21880-11060576

PATIENT
  Sex: Male

DRUGS (6)
  1. REVLIMID [Suspect]
     Indication: MULTIPLE MYELOMA
     Dosage: 25 MILLIGRAM
     Route: 048
     Dates: start: 20110510, end: 20110602
  2. MS CONTIN [Concomitant]
     Indication: PAIN
     Dosage: 300 MILLIGRAM
     Route: 048
     Dates: start: 20110501
  3. CALCIUM + D [Concomitant]
     Route: 065
  4. DECADRON [Concomitant]
     Dosage: 4 MILLIGRAM
     Route: 048
  5. COLACE [Concomitant]
     Dosage: 100 MILLIGRAM
     Route: 065
  6. MORPHINE SULFATE [Concomitant]
     Indication: PAIN
     Dosage: 15 MILLIGRAM
     Route: 048
     Dates: start: 20110501

REACTIONS (1)
  - PULMONARY EMBOLISM [None]
